FAERS Safety Report 5028935-X (Version None)
Quarter: 2006Q2

REPORT INFORMATION
  Report Type: 
  Country: None (occurrence: None)
  Receive Date: 20060503
  Receipt Date: 20060313
  Transmission Date: 20061013
  Serious: Yes (Hospitalization)
  Sender: FDA-Public Use
  Company Number: FACT0600182

PATIENT
  Age: 31 Year
  Sex: Female
  Weight: 73.9 kg

DRUGS (6)
  1. FACTIVE [Suspect]
     Indication: RESPIRATORY TRACT INFECTION BACTERIAL
     Dosage: 320 MG QD ORAL
     Route: 048
     Dates: start: 20050822, end: 20050801
  2. BACTRIM [Suspect]
     Indication: CELLULITIS
     Dosage: ORAL
     Route: 048
     Dates: start: 20050815, end: 20050822
  3. DOXYCYCLINE [Suspect]
     Indication: CELLULITIS
     Dosage: BID ORAL
     Route: 048
     Dates: start: 20050815, end: 20050822
  4. BENADRYL ^WARNER-LAMBERT^/USA (DIPHENHYDRAMINE HYDROCHLORIDE) [Concomitant]
  5. ACETAMINOPHEN [Concomitant]
  6. MOTRIN [Concomitant]

REACTIONS (4)
  - CONJUNCTIVAL HAEMORRHAGE [None]
  - RASH GENERALISED [None]
  - VOMITING [None]
  - WHITE BLOOD CELL COUNT DECREASED [None]
